FAERS Safety Report 6242591-4 (Version None)
Quarter: 2009Q2

REPORT INFORMATION
  Report Type: 
  Country: None (occurrence: None)
  Receive Date: 20090624
  Receipt Date: 20090615
  Transmission Date: 20091009
  Serious: Yes (Other)
  Sender: FDA-Public Use
  Company Number: US-AMGEN-KDL349822

PATIENT
  Sex: Female

DRUGS (7)
  1. NEULASTA [Suspect]
     Indication: CHEMOTHERAPY
     Route: 058
     Dates: start: 20090522
  2. DOXORUBICIN HCL [Concomitant]
     Dates: start: 20090521
  3. BLEOMYCIN SULFATE [Concomitant]
     Dates: start: 20090521
  4. VINBLASTINE SULFATE [Concomitant]
  5. DACARBAZINE [Concomitant]
  6. DECADRON [Concomitant]
     Dates: start: 20090521
  7. ZOFRAN [Concomitant]
     Dates: start: 20090522

REACTIONS (5)
  - DYSPHAGIA [None]
  - GLOSSODYNIA [None]
  - LYMPHADENOPATHY [None]
  - NAUSEA [None]
  - SALIVARY GLAND ENLARGEMENT [None]
